FAERS Safety Report 7659975-X (Version None)
Quarter: 2011Q3

REPORT INFORMATION
  Report Type: 
  Country: None (occurrence: None)
  Receive Date: 20110805
  Receipt Date: 20110801
  Transmission Date: 20111222
  Serious: Yes (Other)
  Sender: FDA-Public Use
  Company Number: US-ABBOTT-11P-163-0843725-00

PATIENT
  Age: 57 Year
  Sex: Male

DRUGS (5)
  1. HUMIRA [Suspect]
     Indication: RHEUMATOID ARTHRITIS
     Dates: start: 20060101
  2. MORPHINE [Concomitant]
     Indication: PAIN
  3. HUMIRA [Suspect]
     Indication: PSORIASIS
     Dates: start: 20110601
  4. FLUID PILL [Concomitant]
     Indication: FLUID IMBALANCE
     Dosage: AS NEEDED
  5. UNKNOWN OINTMENTS [Concomitant]
     Indication: PSORIASIS
     Route: 061

REACTIONS (9)
  - INJECTION SITE PAIN [None]
  - INFLUENZA LIKE ILLNESS [None]
  - LIMB CRUSHING INJURY [None]
  - MOBILITY DECREASED [None]
  - HEADACHE [None]
  - MUSCLE SPASMS [None]
  - ROAD TRAFFIC ACCIDENT [None]
  - FEELING ABNORMAL [None]
  - VISION BLURRED [None]
